FAERS Safety Report 7528126-4 (Version None)
Quarter: 2011Q2

REPORT INFORMATION
  Report Type: 
  Country: None (occurrence: None)
  Receive Date: 20110607
  Receipt Date: 20100903
  Transmission Date: 20111010
  Serious: No
  Sender: FDA-Public Use
  Company Number: US-ASTRAZENECA-2010SE41641

PATIENT
  Age: 675 Month
  Sex: Female
  Weight: 58.1 kg

DRUGS (8)
  1. PRILOSEC [Suspect]
     Route: 048
     Dates: start: 20100701, end: 20100701
  2. BLOOD PRESSURE MEDS [Concomitant]
     Indication: BLOOD PRESSURE
  3. ZANTAC [Concomitant]
  4. PRILOSEC [Suspect]
     Indication: IMPAIRED GASTRIC EMPTYING
     Route: 048
     Dates: start: 20100701, end: 20100701
  5. PRILOSEC [Suspect]
     Route: 048
     Dates: start: 20100701, end: 20100701
  6. PRILOSEC [Suspect]
     Route: 048
     Dates: start: 20100701, end: 20100801
  7. PRILOSEC [Suspect]
     Indication: GASTROOESOPHAGEAL REFLUX DISEASE
     Route: 048
     Dates: start: 20100701, end: 20100701
  8. PRILOSEC [Suspect]
     Route: 048
     Dates: start: 20100701, end: 20100801

REACTIONS (4)
  - NAUSEA [None]
  - WEIGHT DECREASED [None]
  - RETCHING [None]
  - DECREASED APPETITE [None]
